FAERS Safety Report 8097074-6 (Version None)
Quarter: 2012Q1

REPORT INFORMATION
  Report Type: 
  Country: None (occurrence: None)
  Receive Date: 20120131
  Receipt Date: 20120124
  Transmission Date: 20120608
  Serious: Yes (Death, Other)
  Sender: FDA-Public Use
  Company Number: US-AMGEN-USASP2012000273

PATIENT

DRUGS (5)
  1. TRASTUZUMAB [Suspect]
     Dosage: 2 MG/KG, QWK
     Route: 042
  2. FILGRASTIM [Suspect]
     Indication: BREAST CANCER METASTATIC
     Dosage: 5 MUG/KG, PER CHEMO REGIM
  3. VINORELBINE [Suspect]
     Indication: BREAST CANCER METASTATIC
     Dosage: 27.5 MG, PER CHEMO REGIM
     Route: 042
  4. TRASTUZUMAB [Suspect]
     Indication: BREAST CANCER METASTATIC
     Dosage: 4 MG/KG, ONE TIME DOSE
     Route: 040
  5. DOCETAXEL [Suspect]
     Indication: BREAST CANCER METASTATIC
     Dosage: 60 MG, ONE TIME DOSE
     Route: 042

REACTIONS (5)
  - LEUKOPENIA [None]
  - DEATH [None]
  - FATIGUE [None]
  - NEUTROPENIA [None]
  - DISEASE PROGRESSION [None]
